FAERS Safety Report 6167758-5 (Version None)
Quarter: 2009Q2

REPORT INFORMATION
  Report Type: 
  Country: None (occurrence: None)
  Receive Date: 20090427
  Receipt Date: 20090327
  Transmission Date: 20091009
  Serious: No
  Sender: FDA-Public Use
  Company Number: US-BAYER-200916824NA

PATIENT
  Sex: Female

DRUGS (2)
  1. AVELOX [Suspect]
     Indication: DRUG USE FOR UNKNOWN INDICATION
     Dosage: 10 DAY COURSE
     Dates: start: 20090101
  2. AVELOX [Suspect]
     Dosage: 10 DAY COURSE
     Dates: start: 20090301

REACTIONS (2)
  - PAIN IN EXTREMITY [None]
  - TENDONITIS [None]
